FAERS Safety Report 16391793 (Version 2)
Quarter: 2021Q2

REPORT INFORMATION
  Report Type: Spontaneous
  Country: US (occurrence: US)
  Receive Date: 20190605
  Receipt Date: 20210602
  Transmission Date: 20210716
  Serious: No
  Sender: FDA-Public Use
  Company Number: US-ROCHE-2195822

PATIENT
  Sex: Female
  Weight: 95.1 kg

DRUGS (1)
  1. OCREVUS [Suspect]
     Active Substance: OCRELIZUMAB
     Indication: MULTIPLE SCLEROSIS
     Route: 065
     Dates: start: 20171220, end: 20180816

REACTIONS (3)
  - Nausea [Unknown]
  - Maternal exposure during pregnancy [Unknown]
  - Abdominal distension [Unknown]
